FAERS Safety Report 23907334 (Version 2)
Quarter: 2024Q3

REPORT INFORMATION
  Report Type: Spontaneous
  Country: US (occurrence: US)
  Receive Date: 20240528
  Receipt Date: 20240702
  Transmission Date: 20241017
  Serious: No
  Sender: BLUEPRINT MEDICINES
  Company Number: US-Blueprint Medicines Corporation-3679

PATIENT
  Age: 55 Year
  Sex: Male

DRUGS (1)
  1. AYVAKIT [Suspect]
     Active Substance: AVAPRITINIB
     Indication: Gastrointestinal stromal tumour
     Route: 048
     Dates: start: 20240516

REACTIONS (3)
  - Fatigue [Unknown]
  - Lacrimation increased [Unknown]
  - Hair colour changes [Unknown]

NARRATIVE: CASE EVENT DATE: 20240601
